FAERS Safety Report 7766029-0 (Version None)
Quarter: 2011Q3

REPORT INFORMATION
  Report Type: 
  Country: None (occurrence: None)
  Receive Date: 20110921
  Receipt Date: 20110906
  Transmission Date: 20111222
  Serious: Yes (Other)
  Sender: FDA-Public Use
  Company Number: GB-WATSON-2011-14953

PATIENT
  Age: 22 Year
  Sex: Female

DRUGS (1)
  1. RISPERIDONE [Suspect]
     Indication: BIPOLAR DISORDER
     Dosage: 1 MG DAILY

REACTIONS (6)
  - HEADACHE [None]
  - CRANIAL NERVE DISORDER [None]
  - CSF TEST ABNORMAL [None]
  - WEIGHT INCREASED [None]
  - VISION BLURRED [None]
  - BENIGN INTRACRANIAL HYPERTENSION [None]
